FAERS Safety Report 23797176 (Version 2)
Quarter: 2024Q4

REPORT INFORMATION
  Report Type: Report from Study
  Country: US (occurrence: US)
  Receive Date: 20240430
  Receipt Date: 20241018
  Transmission Date: 20250114
  Serious: Yes (Hospitalization, Other)
  Sender: UCB
  Company Number: US-UCBSA-2024020053

PATIENT
  Age: 68 Year
  Sex: Male
  Weight: 108.4 kg

DRUGS (1)
  1. CERTOLIZUMAB PEGOL [Suspect]
     Active Substance: CERTOLIZUMAB PEGOL
     Indication: Rheumatoid arthritis
     Dosage: 400 MILLIGRAM, EV 4 WEEKS
     Route: 058
     Dates: start: 20231020, end: 202312

REACTIONS (17)
  - Aortic stent insertion [Not Recovered/Not Resolved]
  - Lung neoplasm malignant [Not Recovered/Not Resolved]
  - Thrombosis [Not Recovered/Not Resolved]
  - Vascular graft [Not Recovered/Not Resolved]
  - Surgery [Not Recovered/Not Resolved]
  - Aortic thrombosis [Unknown]
  - Pulmonary resection [Unknown]
  - Pneumonia bacterial [Unknown]
  - Leg amputation [Unknown]
  - Rheumatoid arthritis [Unknown]
  - Adverse drug reaction [Not Recovered/Not Resolved]
  - Limb discomfort [Not Recovered/Not Resolved]
  - Weight decreased [Unknown]
  - Feeling abnormal [Unknown]
  - Subcutaneous emphysema [Recovered/Resolved]
  - Skin ulcer [Unknown]
  - Impaired healing [Unknown]

NARRATIVE: CASE EVENT DATE: 20231115
